FAERS Safety Report 9615999 (Version 1)
Quarter: 2013Q4

REPORT INFORMATION
  Report Type: Spontaneous
  Country: US (occurrence: US)
  Receive Date: 20131011
  Receipt Date: 20131011
  Transmission Date: 20140711
  Serious: No
  Sender: FDA-Public Use
  Company Number: US-PURDUE-USA-2013-0100209

PATIENT
  Age: 54 Year
  Sex: Female

DRUGS (5)
  1. BUTRANS [Suspect]
     Indication: PAIN
     Dosage: 10 MCG/HR, UNK
     Route: 062
     Dates: start: 201302
  2. HYDROCODONE [Concomitant]
     Indication: PAIN
     Dosage: 1-2 TABLETS (7.5/500 MG), BID
     Route: 048
     Dates: start: 2007
  3. LIDOCAINE [Concomitant]
     Indication: PAIN
  4. SYNTHROID [Concomitant]
     Indication: HYPOTHYROIDISM
     Dosage: 75 MCG, DAILY
     Route: 048
     Dates: start: 201207
  5. SYNTHROID [Concomitant]
     Dosage: 150 MCG, WEEKLY
     Route: 048
     Dates: start: 201207

REACTIONS (5)
  - Headache [Recovered/Resolved]
  - Nausea [Recovered/Resolved]
  - Pain [Unknown]
  - Stress [Unknown]
  - Vomiting [Recovered/Resolved]
